FAERS Safety Report 5422165-5 (Version None)
Quarter: 2007Q3

REPORT INFORMATION
  Report Type: 
  Country: None (occurrence: None)
  Receive Date: 20070822
  Receipt Date: 20070812
  Transmission Date: 20080115
  Serious: Yes (Other)
  Sender: FDA-Public Use
  Company Number: PHHO2007EC11020

PATIENT
  Age: 48 Year
  Sex: Female
  Weight: 66.8 kg

DRUGS (1)
  1. VEA489 VS VAH631 VS VAA489 VS HCTZ/AMLOD [Suspect]
     Indication: HYPERTENSION
     Dosage: DOUBLE-BLIND
     Route: 048
     Dates: start: 20070423

REACTIONS (2)
  - BREAST NEOPLASM [None]
  - NEOPLASM MALIGNANT [None]
